FAERS Safety Report 10341600 (Version 2)
Quarter: 2014Q3

REPORT INFORMATION
  Report Type: Spontaneous
  Country: JP (occurrence: JP)
  Receive Date: 20140725
  Receipt Date: 20140819
  Transmission Date: 20150326
  Serious: Yes (Other)
  Sender: FDA-Public Use
  Company Number: PHHY2014JP090932

PATIENT
  Age: 73 Year
  Sex: Male

DRUGS (1)
  1. ZOMETA [Suspect]
     Active Substance: ZOLEDRONIC ACID
     Indication: CHONDROSARCOMA
     Dosage: 4 MG, PER ADMINISTARTION
     Dates: start: 201303

REACTIONS (9)
  - Exposed bone in jaw [Recovering/Resolving]
  - Swelling [Recovering/Resolving]
  - Bone disorder [Recovering/Resolving]
  - Gingival erythema [Unknown]
  - Pain [Unknown]
  - Purulent discharge [Unknown]
  - Osteonecrosis of jaw [Recovering/Resolving]
  - Oral cavity fistula [Recovering/Resolving]
  - Gingivitis [Unknown]

NARRATIVE: CASE EVENT DATE: 201303
